FAERS Safety Report 6657229-1 (Version None)
Quarter: 2010Q1

REPORT INFORMATION
  Report Type: 
  Country: None (occurrence: None)
  Receive Date: 20100330
  Receipt Date: 20100319
  Transmission Date: 20100710
  Serious: Yes (Death, Other)
  Sender: FDA-Public Use
  Company Number: PL-MPIJNJ-2010-01495

PATIENT

DRUGS (7)
  1. VELCADE [Suspect]
     Indication: LEUKAEMIA PLASMACYTIC
     Dosage: 1.3 MG/M2, CYCLIC
     Route: 042
     Dates: start: 20061001, end: 20070101
  2. VELCADE [Suspect]
     Dosage: 1.3 MG/M2, CYCLIC
     Route: 042
     Dates: start: 20071101, end: 20080601
  3. DOXORUBICIN HCL [Suspect]
     Indication: LEUKAEMIA PLASMACYTIC
     Dosage: 9 MG/M2, CYCLIC
     Dates: start: 20061001, end: 20070101
  4. DOXORUBICIN HCL [Suspect]
     Dosage: 9 MG/M2, CYCLIC
     Dates: start: 20071101, end: 20080601
  5. DEXAMETHASONE [Suspect]
     Indication: LEUKAEMIA PLASMACYTIC
     Dosage: 40 MG, CYCLIC
     Dates: start: 20061001, end: 20070101
  6. DEXAMETHASONE [Suspect]
     Dosage: 40 MG, CYCLIC
     Dates: start: 20071101, end: 20080601
  7. CYCLOPHOSPHAMIDE [Concomitant]
     Dosage: UNK
     Dates: start: 20071101, end: 20080601

REACTIONS (17)
  - CONSTIPATION [None]
  - DIARRHOEA [None]
  - FATIGUE [None]
  - HEPATITIS B DNA ASSAY POSITIVE [None]
  - HERPES ZOSTER [None]
  - HYPOKALAEMIA [None]
  - HYPONATRAEMIA [None]
  - HYPOTENSION [None]
  - LEUKAEMIA PLASMACYTIC [None]
  - NEUROPATHY PERIPHERAL [None]
  - NEUTROPENIA [None]
  - RESPIRATORY TRACT INFECTION [None]
  - SUBILEUS [None]
  - THROMBOCYTOPENIA [None]
  - TRANSAMINASES INCREASED [None]
  - URINARY TRACT INFECTION [None]
  - VISUAL IMPAIRMENT [None]
